FAERS Safety Report 13855032 (Version 1)
Quarter: 2017Q3

REPORT INFORMATION
  Report Type: Spontaneous
  Country: FR (occurrence: FR)
  Receive Date: 20170810
  Receipt Date: 20170810
  Transmission Date: 20171127
  Serious: Yes (Hospitalization)
  Sender: FDA-Public Use
  Company Number: FR-PFIZER INC-2017345237

PATIENT
  Age: 85 Year
  Sex: Male

DRUGS (6)
  1. ACEBUTOLOL [Concomitant]
     Active Substance: ACEBUTOLOL
     Dosage: UNK
  2. CORDARONE [Suspect]
     Active Substance: AMIODARONE HYDROCHLORIDE
     Indication: ATRIOVENTRICULAR BLOCK
     Dosage: 200 MG, 2X/DAY (1 DF TWICE PER DAY)
     Route: 048
     Dates: start: 201607, end: 201610
  3. NIFEDIPINE. [Concomitant]
     Active Substance: NIFEDIPINE
     Dosage: UNK
  4. KARDEGIC [Concomitant]
     Active Substance: ASPIRIN LYSINE
     Dosage: UNK
  5. SIMVASTATIN. [Concomitant]
     Active Substance: SIMVASTATIN
     Dosage: UNK
  6. LISINOPRIL. [Concomitant]
     Active Substance: LISINOPRIL
     Dosage: UNK

REACTIONS (6)
  - Lung disorder [Unknown]
  - Blood thyroid stimulating hormone decreased [Recovered/Resolved]
  - Goitre [Unknown]
  - Lung disorder [Recovered/Resolved]
  - Cardiac failure [Unknown]
  - Thyroxine increased [Unknown]

NARRATIVE: CASE EVENT DATE: 201610
